FAERS Safety Report 4084476 (Version 2)
Quarter: 2014Q2

REPORT INFORMATION
  Report Type: Spontaneous
  Country: US (occurrence: None)
  Receive Date: 20040112
  Receipt Date: 20140522
  Transmission Date: 20141212
  Serious: Yes (Other)
  Sender: FDA-Public Use
  Company Number: 350584

PATIENT
  Age: 42 Year
  Sex: Male

DRUGS (10)
  1. FUZEON [Suspect]
     Indication: HIV INFECTION
     Dosage: SUBCUTANEOUS
     Route: 058
     Dates: start: 20030715, end: 20030715
  2. BACTRIM [Concomitant]
  3. SEREVENT DISKUS [Concomitant]
  4. FLOVENT [Concomitant]
  5. NORTRIPTYLINE (NORTRIPTYLINE HYDROCHLORIDE) [Concomitant]
  6. LORAZEPAM (LORAZEPAM) [Concomitant]
  7. ZIDOVUDINE (ZIDOVUDINE) [Concomitant]
  8. LAMIVUDINE (LAMIVUDINE) [Concomitant]
  9. TENOFOVIR (TENOFOVIR) [Concomitant]
  10. LOPINAVIR/RITONAVIR (LOPINAVIR, RITONAVIR) [Concomitant]

REACTIONS (7)
  - Anaphylactic reaction [None]
  - Hypotension [None]
  - Pyrexia [None]
  - Adverse event [None]
  - Dyspnoea [None]
  - Bronchospasm [None]
  - Chills [None]
